FAERS Safety Report 5113657-7 (Version None)
Quarter: 2006Q3

REPORT INFORMATION
  Report Type: 
  Country: None (occurrence: None)
  Receive Date: 20060920
  Receipt Date: 20060907
  Transmission Date: 20061208
  Serious: Yes (Other)
  Sender: FDA-Public Use
  Company Number: 2006097143

PATIENT
  Age: 40 Year
  Sex: Female

DRUGS (4)
  1. EPIRUBICIN [Suspect]
     Indication: BREAST CANCER
     Dosage: 75 MG/M*2 (75 MG/M*2, ONCE DAILY - INTERVAL: CYCLIC), INTRAVENOUS
     Route: 042
     Dates: start: 20060119, end: 20060323
  2. CYCLOPHOSPHAMIDE [Suspect]
     Indication: BREAST CANCER
     Dosage: 600 MG/M*2 (600 MG/M*2, ONCE DAILY - INTERVAL: CYCLIC), INTRAVENOUS
     Route: 042
     Dates: start: 20060119, end: 20060323
  3. KYTRIL [Suspect]
     Indication: PROPHYLAXIS
     Dosage: 1 AMPULE (ONCE DAILY - INTERVAL: CYCLIC, INTRAVENOUS
     Route: 042
     Dates: start: 20060119, end: 20060323
  4. DECADRON [Suspect]
     Indication: PROPHYLAXIS
     Dosage: 8 MG (8 MG, ONCE DAILY - INTERVAL: CYCLIC), INTRAVENOUS
     Route: 042
     Dates: start: 20060119, end: 20060323

REACTIONS (1)
  - PLATELET AGGREGATION [None]
